FAERS Safety Report 22831912 (Version 2)
Quarter: 2023Q4

REPORT INFORMATION
  Report Type: Spontaneous
  Country: FR (occurrence: FR)
  Receive Date: 20230817
  Receipt Date: 20231005
  Transmission Date: 20240109
  Serious: Yes (Other)
  Sender: FDA-Public Use
  Company Number: FR-BRISTOL-MYERS SQUIBB COMPANY-2023-115402

PATIENT
  Age: 39 Year

DRUGS (4)
  1. BELATACEPT [Suspect]
     Active Substance: BELATACEPT
     Indication: Renal transplant
     Dosage: 1, 5, 14, 28, 56, AND 84
     Route: 042
  2. BELATACEPT [Suspect]
     Active Substance: BELATACEPT
     Route: 042
  3. BELATACEPT [Suspect]
     Active Substance: BELATACEPT
     Route: 042
  4. BELATACEPT [Suspect]
     Active Substance: BELATACEPT
     Route: 042

REACTIONS (1)
  - Hepatitis B reactivation [Unknown]
